FAERS Safety Report 8778790 (Version 2)
Quarter: 2013Q2

REPORT INFORMATION
  Report Type: Spontaneous
  Country: US (occurrence: US)
  Receive Date: 20120912
  Receipt Date: 20130517
  Transmission Date: 20140414
  Serious: No
  Sender: FDA-Public Use
  Company Number: US-PFIZER INC-2012222902

PATIENT
  Age: 36 Year
  Sex: Male

DRUGS (3)
  1. CHANTIX [Suspect]
     Dosage: STARTING PACK
     Dates: start: 20080624
  2. CHANTIX [Suspect]
     Dosage: 1 MG, CONTINUING PACK
     Dates: start: 20080906
  3. CHANTIX [Suspect]
     Dosage: UNK
     Dates: end: 20090317

REACTIONS (3)
  - Depression [Unknown]
  - Abnormal dreams [Unknown]
  - Irritability [Unknown]
